FAERS Safety Report 10615722 (Version 1)
Quarter: 2014Q4

REPORT INFORMATION
  Report Type: Spontaneous
  Country: US (occurrence: None)
  Receive Date: 20141125
  Receipt Date: 20141125
  Transmission Date: 20150529
  Serious: No
  Sender: FDA-Public Use
  Company Number: None

PATIENT
  Age: 45 Year
  Sex: Female
  Weight: 93.9 kg

DRUGS (1)
  1. BELVIQ [Suspect]
     Active Substance: LORCASERIN HYDROCHLORIDE
     Indication: WEIGHT DECREASED
     Dosage: 2 PILLS DAILY TWICE DAILY TAKEN BY MOUTH
     Route: 048
     Dates: start: 20141120

REACTIONS (6)
  - Headache [None]
  - Somnolence [None]
  - Weight increased [None]
  - Nausea [None]
  - Fatigue [None]
  - Eye pain [None]

NARRATIVE: CASE EVENT DATE: 20141124
